FAERS Safety Report 25035809 (Version 1)
Quarter: 2025Q1

REPORT INFORMATION
  Report Type: Report from Study
  Country: US (occurrence: US)
  Receive Date: 20250304
  Receipt Date: 20250304
  Transmission Date: 20250408
  Serious: Yes (Hospitalization)
  Sender: CHIESI
  Company Number: US-CHIESI-2025CHF01385

PATIENT
  Age: 23 Year
  Sex: Male
  Weight: 47.59 kg

DRUGS (1)
  1. BIRCH BARK\HERBALS [Suspect]
     Active Substance: BIRCH BARK\HERBALS
     Indication: Epidermolysis bullosa
     Route: 061
     Dates: start: 20240618

REACTIONS (1)
  - Oesophageal disorder [Recovering/Resolving]

NARRATIVE: CASE EVENT DATE: 20250224
